FAERS Safety Report 6871802-7 (Version None)
Quarter: 2010Q3

REPORT INFORMATION
  Report Type: 
  Country: None (occurrence: None)
  Receive Date: 20100723
  Receipt Date: 20100715
  Transmission Date: 20110219
  Serious: Yes (Other)
  Sender: FDA-Public Use
  Company Number: B0656799A

PATIENT
  Sex: Male

DRUGS (1)
  1. FLIXONASE [Suspect]
     Indication: PRODUCT USED FOR UNKNOWN INDICATION
     Route: 045

REACTIONS (1)
  - DIABETES MELLITUS INADEQUATE CONTROL [None]
